FAERS Safety Report 5950599-9 (Version None)
Quarter: 2008Q4

REPORT INFORMATION
  Report Type: 
  Country: None (occurrence: None)
  Receive Date: 20081022
  Receipt Date: 20080724
  Transmission Date: 20090506
  Serious: No
  Sender: FDA-Public Use
  Company Number: ALL1-2008-02099

PATIENT
  Age: 25 Year
  Sex: Female
  Weight: 65.8 kg

DRUGS (3)
  1. VYVANSE [Suspect]
     Indication: ATTENTION DEFICIT/HYPERACTIVITY DISORDER
     Dosage: 30 MG,1X/DAY:QD,ORAL;  60 MG,1X/DAY:QD,ORAL
     Route: 048
     Dates: start: 20080701, end: 20080719
  2. VYVANSE [Suspect]
     Indication: ATTENTION DEFICIT/HYPERACTIVITY DISORDER
     Dosage: 30 MG,1X/DAY:QD,ORAL;  60 MG,1X/DAY:QD,ORAL
     Route: 048
     Dates: start: 20080720
  3. ORAL CONTRACEPTIVE NOS [Concomitant]

REACTIONS (3)
  - CHEST PAIN [None]
  - DRUG EFFECT DECREASED [None]
  - DYSPNOEA [None]
